FAERS Safety Report 16584783 (Version 1)
Quarter: 2019Q3

REPORT INFORMATION
  Report Type: Report from Study
  Country: None (occurrence: CR)
  Receive Date: 20190717
  Receipt Date: 20190717
  Transmission Date: 20191004
  Serious: Yes (Other)
  Sender: FDA-Public Use
  Company Number: US-BIOVITRUM-2019US1896

PATIENT
  Sex: Female

DRUGS (11)
  1. LEVOTHYROXINE. [Concomitant]
     Active Substance: LEVOTHYROXINE
  2. MELATONIN [Concomitant]
     Active Substance: MELATONIN
  3. PROBIOTIC [Concomitant]
     Active Substance: PROBIOTICS NOS
  4. DIPHENHYDRAMINE. [Concomitant]
     Active Substance: DIPHENHYDRAMINE
  5. IRON SUPPLEMENT [Concomitant]
     Active Substance: IRON
  6. ETODOLAC. [Concomitant]
     Active Substance: ETODOLAC
  7. KINERET [Suspect]
     Active Substance: ANAKINRA
     Route: 058
     Dates: start: 20190610, end: 20190702
  8. PANTOPRAZOLE [Concomitant]
     Active Substance: PANTOPRAZOLE
  9. METFORMIN [Concomitant]
     Active Substance: METFORMIN HYDROCHLORIDE
  10. LIOTHYRONINE [Concomitant]
     Active Substance: LIOTHYRONINE
  11. STOOL SOFTENER (DOCUSATE) [Concomitant]
     Active Substance: DOCUSATE

REACTIONS (5)
  - Injection site reaction [Unknown]
  - Injection site warmth [Unknown]
  - Injection site pain [Unknown]
  - Injection site cellulitis [Unknown]
  - Injection site pruritus [Unknown]
